FAERS Safety Report 6065994-X (Version None)
Quarter: 2009Q1

REPORT INFORMATION
  Report Type: 
  Country: None (occurrence: None)
  Receive Date: 20090205
  Receipt Date: 20090126
  Transmission Date: 20090719
  Serious: Yes (Hospitalization)
  Sender: FDA-Public Use
  Company Number: SE-PFIZER INC-2009160354

PATIENT

DRUGS (4)
  1. SUTENT [Suspect]
     Indication: RENAL CANCER
     Route: 048
     Dates: start: 20080901, end: 20081001
  2. OXYNORM [Concomitant]
     Dosage: UNK
     Route: 051
  3. MIRTAZAPINE [Concomitant]
     Dosage: UNK
  4. OXASCAND [Concomitant]
     Route: 048

REACTIONS (1)
  - GLOSSITIS [None]
